FAERS Safety Report 6863178-6 (Version None)
Quarter: 2010Q3

REPORT INFORMATION
  Report Type: 
  Country: None (occurrence: None)
  Receive Date: 20100721
  Receipt Date: 20100714
  Transmission Date: 20110219
  Serious: Yes (Hospitalization, Other)
  Sender: FDA-Public Use
  Company Number: US-JNJCH-2009031692

PATIENT
  Age: 5 Year
  Sex: Female
  Weight: 17.5 kg

DRUGS (3)
  1. ASPIRIN [Suspect]
     Indication: ANTIPYRESIS
     Dosage: TEXT:SEE NARRATIVE
     Route: 048
  2. ACETAMINOPHEN [Suspect]
     Indication: ANTIPYRESIS
     Dosage: TEXT:300 MG EVERY 4 HOURS
     Route: 048
  3. COUGH AND COLD PREPARATIONS [Concomitant]
     Indication: COUGH
     Dosage: TEXT:4 DOSES
     Route: 048

REACTIONS (2)
  - DRUG TOXICITY [None]
  - WRONG DRUG ADMINISTERED [None]
